FAERS Safety Report 12712820 (Version 2)
Quarter: 2016Q4

REPORT INFORMATION
  Report Type: Report from Study
  Country: CA (occurrence: CA)
  Receive Date: 20160902
  Receipt Date: 20161003
  Transmission Date: 20170207
  Serious: Yes (Death, Hospitalization)
  Sender: FDA-Public Use
  Company Number: CA-HLSUS-2016-CA-000425

PATIENT
  Sex: Female

DRUGS (1)
  1. CLOZARIL [Suspect]
     Active Substance: CLOZAPINE
     Dosage: 500 MG AT BED TIME
     Route: 048
     Dates: start: 20051018, end: 201608

REACTIONS (3)
  - Dysphagia [Unknown]
  - Neoplasm malignant [None]
  - Metastasis [Fatal]
